FAERS Safety Report 25552513 (Version 1)
Quarter: 2025Q3

REPORT INFORMATION
  Report Type: Spontaneous
  Country: EU (occurrence: EU)
  Receive Date: 20250715
  Receipt Date: 20250715
  Transmission Date: 20251021
  Serious: Yes (Hospitalization, Other)
  Sender: RISING PHARMACEUTICALS
  Company Number: EU-RISINGPHARMA-ES-2025RISLIT00343

PATIENT
  Age: 9 Decade
  Sex: Female

DRUGS (8)
  1. METRONIDAZOLE [Suspect]
     Active Substance: METRONIDAZOLE
     Indication: Submandibular abscess
     Route: 048
  2. AMOXICILLIN [Concomitant]
     Active Substance: AMOXICILLIN
     Route: 065
  3. ENALAPRIL [Concomitant]
     Active Substance: ENALAPRIL
     Indication: Hypertension
     Route: 065
  4. HYDROCHLOROTHIAZIDE [Concomitant]
     Active Substance: HYDROCHLOROTHIAZIDE
     Indication: Hypertension
     Route: 065
  5. SIMVASTATIN [Concomitant]
     Active Substance: SIMVASTATIN
     Indication: Dyslipidaemia
     Route: 065
  6. LEFLUNOMIDE [Concomitant]
     Active Substance: LEFLUNOMIDE
     Indication: Rheumatoid arthritis
     Route: 065
  7. HYDROXYCHLOROQUINE [Concomitant]
     Active Substance: HYDROXYCHLOROQUINE
     Indication: Rheumatoid arthritis
     Route: 065
  8. PREDNISONE [Concomitant]
     Active Substance: PREDNISONE
     Indication: Rheumatoid arthritis
     Route: 065

REACTIONS (23)
  - Neurotoxicity [Recovering/Resolving]
  - Toxicity to various agents [Recovering/Resolving]
  - Paraesthesia [Not Recovered/Not Resolved]
  - Condition aggravated [Not Recovered/Not Resolved]
  - Bradyphrenia [Recovering/Resolving]
  - Pain in extremity [Recovering/Resolving]
  - Disorientation [Recovering/Resolving]
  - Gait disturbance [Recovering/Resolving]
  - Nystagmus [Recovering/Resolving]
  - Hyporeflexia [Recovering/Resolving]
  - Areflexia [Recovering/Resolving]
  - Extensor plantar response [Recovering/Resolving]
  - Dysphagia [Recovering/Resolving]
  - Hypoaesthesia [Recovering/Resolving]
  - Postural tremor [Not Recovered/Not Resolved]
  - Dysmetria [Recovering/Resolving]
  - Somnolence [Recovered/Resolved]
  - Dizziness [Recovered/Resolved]
  - Nausea [Recovered/Resolved]
  - Neuropathy peripheral [Recovering/Resolving]
  - Vomiting [Recovering/Resolving]
  - Dysarthria [Recovered/Resolved]
  - Cerebellar ataxia [Recovering/Resolving]
